FAERS Safety Report 5521243-X (Version None)
Quarter: 2007Q4

REPORT INFORMATION
  Report Type: 
  Country: None (occurrence: None)
  Receive Date: 20071119
  Receipt Date: 20071107
  Transmission Date: 20080405
  Serious: Yes (Hospitalization)
  Sender: FDA-Public Use
  Company Number: FR-SANOFI-SYNTHELABO-A02200703316

PATIENT
  Sex: Male

DRUGS (5)
  1. PROSCAR [Suspect]
     Indication: DRUG USE FOR UNKNOWN INDICATION
     Dosage: UNK
     Route: 048
  2. PROZAC [Suspect]
     Indication: SCHIZOPHRENIA
     Dosage: UNK
     Route: 048
     Dates: start: 20060101
  3. STILNOX [Suspect]
     Indication: SCHIZOPHRENIA
     Dosage: UNK
     Route: 048
     Dates: start: 20060101
  4. DEPAKOTE [Suspect]
     Indication: DRUG USE FOR UNKNOWN INDICATION
     Dosage: UNK
     Route: 048
     Dates: start: 20060101
  5. LEPONEX [Suspect]
     Indication: SCHIZOPHRENIA
     Dosage: UNK
     Dates: start: 20070830, end: 20070921

REACTIONS (6)
  - ALPHA GLOBULIN INCREASED [None]
  - BETA GLOBULIN INCREASED [None]
  - HYPOALBUMINAEMIA [None]
  - IMMUNOGLOBULINS INCREASED [None]
  - LEUKOCYTOCLASTIC VASCULITIS [None]
  - PURPURA [None]
